FAERS Safety Report 7892552-4 (Version None)
Quarter: 2011Q4

REPORT INFORMATION
  Report Type: 
  Country: None (occurrence: None)
  Receive Date: 20111104
  Receipt Date: 20111031
  Transmission Date: 20120403
  Serious: Yes (Other)
  Sender: FDA-Public Use
  Company Number: US-CELGENEUS-163-21880-11081400

PATIENT
  Sex: Male
  Weight: 69.462 kg

DRUGS (16)
  1. AMBIEN [Concomitant]
     Route: 065
  2. DILAUDID [Concomitant]
     Route: 065
  3. SELZENTRY [Concomitant]
     Route: 065
  4. FLUCONAZOLE [Concomitant]
     Route: 065
  5. LIPITOR [Concomitant]
     Route: 065
  6. TRUVADA [Concomitant]
     Route: 065
  7. ZOFRAN [Concomitant]
     Route: 065
  8. ACYCLOVIR [Concomitant]
     Route: 065
  9. BACTRIM [Concomitant]
     Route: 065
  10. DEXAMETHASONE [Concomitant]
     Route: 065
  11. LEXAPRO [Concomitant]
     Route: 065
  12. LOMOTIL [Concomitant]
     Route: 065
  13. LOVENOX [Concomitant]
     Route: 065
  14. METOPROLOL [Concomitant]
     Route: 065
  15. NEURONTIN [Concomitant]
     Route: 065
  16. REVLIMID [Suspect]
     Indication: MULTIPLE MYELOMA
     Dosage: 5 MILLIGRAM
     Route: 048
     Dates: start: 20110713, end: 20110101

REACTIONS (1)
  - THROAT CANCER [None]
